FAERS Safety Report 6498962-4 (Version None)
Quarter: 2009Q4

REPORT INFORMATION
  Report Type: 
  Country: None (occurrence: None)
  Receive Date: 20091127
  Receipt Date: 20090107
  Transmission Date: 20100525
  Serious: Yes (Hospitalization)
  Sender: FDA-Public Use
  Company Number: 282114

PATIENT
  Age: 15 Year
  Sex: Female

DRUGS (3)
  1. NOVOLOG MIX 70/30 [Suspect]
     Indication: TYPE 1 DIABETES MELLITUS
     Dosage: SUBCUTANEOUS; 32 UNITS IN AM AND 22 UNITS IN PM SUBCUTANEOUS
     Route: 058
     Dates: start: 20081201
  2. NOVOLOG [Suspect]
     Indication: TYPE 1 DIABETES MELLITUS
     Dosage: PRN, SUBCUTANEOUS
     Route: 058
  3. LANTUS [Concomitant]

REACTIONS (1)
  - DIABETIC KETOACIDOSIS [None]
